FAERS Safety Report 7334549-9 (Version None)
Quarter: 2011Q1

REPORT INFORMATION
  Report Type: 
  Country: None (occurrence: None)
  Receive Date: 20110222
  Receipt Date: 20110208
  Transmission Date: 20110831
  Serious: No
  Sender: FDA-Public Use
  Company Number: B0700835B

PATIENT
  Sex: Female

DRUGS (4)
  1. GENTAMICIN SULFATE [Suspect]
     Dosage: TRANSPLACENTARY
     Route: 064
  2. CLINDAMYCIN [Suspect]
     Dosage: TRANSPLACENTARY
     Route: 064
  3. PHENOBARBITONE [Concomitant]
  4. AMPICILLIN TRIHYDRATE [Concomitant]

REACTIONS (25)
  - NEONATAL RESPIRATORY FAILURE [None]
  - GRAND MAL CONVULSION [None]
  - MUSCLE SPASTICITY [None]
  - QUADRIPLEGIA [None]
  - SEPSIS NEONATAL [None]
  - MATERNAL DRUGS AFFECTING FOETUS [None]
  - BACTERIAL TEST POSITIVE [None]
  - CEREBRAL CYST [None]
  - SPEECH DISORDER DEVELOPMENTAL [None]
  - CSF PROTEIN INCREASED [None]
  - BRAIN OEDEMA [None]
  - CENTRAL NERVOUS SYSTEM LESION [None]
  - APGAR SCORE LOW [None]
  - THROMBOCYTOPENIA [None]
  - LETHARGY [None]
  - FONTANELLE BULGING [None]
  - ULTRASOUND SCAN ABNORMAL [None]
  - HYPOTONIA NEONATAL [None]
  - EPILEPSY [None]
  - CEREBRAL PALSY [None]
  - CSF TEST ABNORMAL [None]
  - GRUNTING [None]
  - MICROCEPHALY [None]
  - LUNG INFILTRATION [None]
  - CSF GLUCOSE INCREASED [None]
